FAERS Safety Report 8133223-9 (Version None)
Quarter: 2012Q1

REPORT INFORMATION
  Report Type: 
  Country: None (occurrence: None)
  Receive Date: 20120213
  Receipt Date: 20120208
  Transmission Date: 20120608
  Serious: Yes (Death, Other)
  Sender: FDA-Public Use
  Company Number: PHHY2010CA89225

PATIENT

DRUGS (3)
  1. ALISKIREN [Suspect]
  2. CALCIUM CHANNEL BLOCKERS [Concomitant]
  3. BETA BLOCKING AGENTS [Concomitant]

REACTIONS (3)
  - CORONARY ARTERY DISEASE [None]
  - DEATH [None]
  - CARDIAC FAILURE [None]
